FAERS Safety Report 19997190 (Version 1)
Quarter: 2021Q4

REPORT INFORMATION
  Report Type: Spontaneous
  Country: US (occurrence: US)
  Receive Date: 20211025
  Receipt Date: 20211025
  Transmission Date: 20220303
  Serious: No
  Sender: FDA-Public Use
  Company Number: US-BEH-2021137340

PATIENT
  Age: 66 Year
  Sex: Female

DRUGS (1)
  1. HIZENTRA [Suspect]
     Active Substance: HUMAN IMMUNOGLOBULIN G
     Indication: Hypogammaglobulinaemia
     Dosage: 10 GRAM, QW
     Route: 058
     Dates: start: 202101

REACTIONS (7)
  - Infusion site pruritus [Unknown]
  - Infusion site pain [Unknown]
  - Infusion site swelling [Unknown]
  - Infusion site erythema [Unknown]
  - Infusion site pain [Recovered/Resolved]
  - Infusion site pruritus [Recovered/Resolved]
  - Infusion site swelling [Recovered/Resolved]

NARRATIVE: CASE EVENT DATE: 20211001
